FAERS Safety Report 7730077-7 (Version None)
Quarter: 2011Q3

REPORT INFORMATION
  Report Type: 
  Country: None (occurrence: None)
  Receive Date: 20110906
  Receipt Date: 20110826
  Transmission Date: 20111222
  Serious: No
  Sender: FDA-Public Use
  Company Number: PHHY2011US64800

PATIENT
  Sex: Female

DRUGS (4)
  1. TRAMADOL HYDROCHLORIDE [Concomitant]
     Dosage: UNK UKN, OT
  2. GILENYA [Suspect]
     Indication: MULTIPLE SCLEROSIS
     Dosage: 0.5 MG, QD
     Route: 048
     Dates: start: 20110622
  3. TOPAMAX [Concomitant]
     Dosage: UNK UKN, OT
  4. FIORICET [Concomitant]
     Dosage: UNK UKN, OT

REACTIONS (4)
  - OTITIS EXTERNA [None]
  - TINNITUS [None]
  - CERUMEN IMPACTION [None]
  - FATIGUE [None]
